FAERS Safety Report 14909153 (Version 1)
Quarter: 2018Q2

REPORT INFORMATION
  Report Type: Spontaneous
  Country: CL (occurrence: CL)
  Receive Date: 20180517
  Receipt Date: 20180517
  Transmission Date: 20180711
  Serious: Yes (Other)
  Sender: FDA-Public Use
  Company Number: PHHY2018CL006152

PATIENT
  Age: 57 Year
  Sex: Male

DRUGS (2)
  1. DUOTRAV (ALC) [Suspect]
     Active Substance: TIMOLOL MALEATE\TRAVOPROST
     Dosage: 3 GTT, QD
     Route: 047
  2. DUOTRAV (ALC) [Suspect]
     Active Substance: TIMOLOL MALEATE\TRAVOPROST
     Indication: INTRAOCULAR PRESSURE INCREASED
     Dosage: 1 GTT, QD IN MORNING
     Route: 047

REACTIONS (2)
  - Retinal detachment [Unknown]
  - Intraocular pressure increased [Recovered/Resolved]
